FAERS Safety Report 10195017 (Version 2)
Quarter: 2014Q2

REPORT INFORMATION
  Report Type: Spontaneous
  Country: JP (occurrence: JP)
  Receive Date: 20140526
  Receipt Date: 20140526
  Transmission Date: 20141212
  Serious: Yes (Hospitalization)
  Sender: FDA-Public Use
  Company Number: PHHY2013JP078212

PATIENT
  Age: 65 Year
  Sex: Male

DRUGS (3)
  1. EVEROLIMUS [Suspect]
     Indication: RENAL CELL CARCINOMA
     Dosage: 10 MG, DAILY
     Route: 048
     Dates: start: 20100805, end: 20101217
  2. EVEROLIMUS [Suspect]
     Dosage: 10 MG, DAILY
     Route: 048
     Dates: start: 20110108
  3. MIGLITOL [Suspect]
     Dosage: 3 DF, DAILY
     Dates: start: 201010

REACTIONS (11)
  - Abdominal distension [Unknown]
  - Flatulence [Unknown]
  - Syncope [Unknown]
  - Hot flush [Unknown]
  - Nausea [Unknown]
  - Hyperhidrosis [Unknown]
  - Hypotension [Recovered/Resolved]
  - Tachycardia [Unknown]
  - Bradycardia [Unknown]
  - Diabetes mellitus [Unknown]
  - Interstitial lung disease [Recovering/Resolving]
